FAERS Safety Report 8936541 (Version 2)
Quarter: 2012Q4

REPORT INFORMATION
  Report Type: 
  Country: SG (occurrence: SG)
  Receive Date: 20121130
  Receipt Date: 20121204
  Transmission Date: 20130627
  Serious: Yes (Other)
  Sender: FDA-Public Use
  Company Number: SG-PFIZER INC-2012297122

PATIENT
  Age: 22 Year
  Sex: Male

DRUGS (3)
  1. LOMOTIL [Suspect]
     Route: 065
  2. FAMOTIDINE [Suspect]
     Indication: PRODUCT USED FOR UNKNOWN INDICATION
     Route: 065
  3. DOMPERIDONE [Suspect]
     Indication: PRODUCT USED FOR UNKNOWN INDICATION
     Route: 065

REACTIONS (1)
  - Rash [Unknown]
